FAERS Safety Report 9863346 (Version 1)
Quarter: 2014Q1

REPORT INFORMATION
  Report Type: Spontaneous
  Country: US (occurrence: US)
  Receive Date: 20140203
  Receipt Date: 20140203
  Transmission Date: 20141002
  Serious: Yes (Other)
  Sender: FDA-Public Use
  Company Number: US-PFIZER INC-2014027466

PATIENT
  Sex: Female

DRUGS (2)
  1. DILANTIN [Suspect]
     Dosage: UNK
  2. PHENOBARBITAL [Suspect]
     Dosage: UNK, 1X/DAY (QD)

REACTIONS (1)
  - Convulsion [Unknown]
